FAERS Safety Report 8324883-8 (Version None)
Quarter: 2012Q1

REPORT INFORMATION
  Report Type: 
  Country: None (occurrence: None)
  Receive Date: 20120315
  Receipt Date: 20110405
  Transmission Date: 20120608
  Serious: No
  Sender: FDA-Public Use
  Company Number: PHHY2011US28275

PATIENT
  Age: 50 Year
  Sex: Female

DRUGS (9)
  1. VITAMIN D [Concomitant]
  2. GILENYA [Suspect]
     Dosage: 0.5 MG, DAILY, ORAL
     Route: 048
  3. ZOLOFT [Concomitant]
  4. ALPRAZOLAM [Concomitant]
  5. VITAMIN B12 [Concomitant]
  6. AVONEX [Concomitant]
  7. OXYBUTYNIN [Concomitant]
  8. PROVIGIL [Concomitant]
  9. XANAX [Concomitant]

REACTIONS (2)
  - CHEST PAIN [None]
  - DYSPNOEA [None]
